FAERS Safety Report 8963335 (Version 1)
Quarter: 2012Q4

REPORT INFORMATION
  Report Type: 
  Country: US (occurrence: US)
  Receive Date: 20121214
  Receipt Date: 20121214
  Transmission Date: 20130627
  Serious: No
  Sender: FDA-Public Use
  Company Number: US-JNJFOC-20121200472

PATIENT
  Age: 69 Year
  Sex: Female
  Weight: 83.92 kg

DRUGS (2)
  1. SANDOZ FENTANYL TRANSDERMAL SYSTEM [Suspect]
     Indication: POST POLIO SYNDROME
     Dosage: NDC number: 0781-7241-55
     Route: 062
  2. HYDROCHLOROTHIAZIDE [Concomitant]
     Indication: DIURETIC THERAPY

REACTIONS (6)
  - Restless legs syndrome [Not Recovered/Not Resolved]
  - Product packaging quantity issue [Unknown]
  - Insomnia [Not Recovered/Not Resolved]
  - Post polio syndrome [Not Recovered/Not Resolved]
  - Inappropriate schedule of drug administration [Not Recovered/Not Resolved]
  - Insomnia [Recovered/Resolved]
